FAERS Safety Report 25920641 (Version 4)
Quarter: 2025Q4

REPORT INFORMATION
  Report Type: Spontaneous
  Country: AR (occurrence: AR)
  Receive Date: 20251014
  Receipt Date: 20251211
  Transmission Date: 20260117
  Serious: Yes (Other)
  Sender: SANDOZ
  Company Number: AR-002147023-NVSC2025AR155501

PATIENT
  Age: 61 Year
  Sex: Female

DRUGS (4)
  1. FULVESTRANT [Suspect]
     Active Substance: FULVESTRANT
     Indication: Breast cancer metastatic
     Dosage: 2 DOSAGE FORM (250MG), EVERY 28 DAYS
     Route: 065
  2. KISQALI [Suspect]
     Active Substance: RIBOCICLIB SUCCINATE
     Indication: Breast cancer metastatic
     Dosage: 600 MG, QD
     Route: 048
     Dates: start: 20250919, end: 2025
  3. ACETAMINOPHEN [Concomitant]
     Active Substance: ACETAMINOPHEN
     Indication: Bone pain
     Dosage: UNK
     Route: 065
  4. TRAMADOL [Concomitant]
     Active Substance: TRAMADOL
     Indication: Bone pain
     Dosage: UNK
     Route: 065

REACTIONS (21)
  - Nodule [Unknown]
  - Hypoxia [Unknown]
  - Arrhythmia [Unknown]
  - Vitamin D decreased [Unknown]
  - Blood iron abnormal [Unknown]
  - Red blood cell count abnormal [Unknown]
  - Gait disturbance [Unknown]
  - Erythema [Unknown]
  - Blood pressure systolic decreased [Unknown]
  - Oliguria [Unknown]
  - Peripheral venous disease [Unknown]
  - Breast mass [Unknown]
  - Anaemia [Unknown]
  - Dyspnoea [Recovered/Resolved]
  - Peripheral swelling [Recovering/Resolving]
  - Blood pressure increased [Recovered/Resolved]
  - Bronchitis [Recovered/Resolved]
  - Cough [Recovered/Resolved]
  - Fatigue [Unknown]
  - Hypersensitivity [Unknown]
  - Headache [Recovered/Resolved]

NARRATIVE: CASE EVENT DATE: 20251022
